FAERS Safety Report 14798802 (Version 2)
Quarter: 2018Q2

REPORT INFORMATION
  Report Type: Spontaneous
  Country: FR (occurrence: FR)
  Receive Date: 20180424
  Receipt Date: 20180511
  Transmission Date: 20180711
  Serious: Yes (Other)
  Sender: FDA-Public Use
  Company Number: FR-BAUSCH-BL-2018-010797

PATIENT
  Age: 5 Year
  Sex: Male

DRUGS (6)
  1. 6-MERCAPTOPURINE MONOHYDRATE [Suspect]
     Active Substance: MERCAPTOPURINE
     Indication: ACUTE LYMPHOCYTIC LEUKAEMIA
     Route: 048
     Dates: start: 20180108
  2. ONCASPAR [Suspect]
     Active Substance: PEGASPARGASE
     Indication: ACUTE LYMPHOCYTIC LEUKAEMIA
     Route: 042
     Dates: start: 20180115
  3. DEXAMETHASONE. [Suspect]
     Active Substance: DEXAMETHASONE
     Indication: ACUTE LYMPHOCYTIC LEUKAEMIA
     Route: 048
     Dates: start: 20180108
  4. VINCRISTINE [Suspect]
     Active Substance: VINCRISTINE
     Indication: ACUTE LYMPHOCYTIC LEUKAEMIA
     Route: 042
     Dates: start: 20180108
  5. METHOTREXATE. [Suspect]
     Active Substance: METHOTREXATE
     Indication: ACUTE LYMPHOCYTIC LEUKAEMIA
     Route: 037
     Dates: start: 20180109
  6. METHOTREXATE. [Suspect]
     Active Substance: METHOTREXATE
     Route: 048
     Dates: start: 20180115

REACTIONS (1)
  - Hyperbilirubinaemia [Recovered/Resolved]

NARRATIVE: CASE EVENT DATE: 20180223
